FAERS Safety Report 11463452 (Version 2)
Quarter: 2017Q1

REPORT INFORMATION
  Report Type: Spontaneous
  Country: US (occurrence: US)
  Receive Date: 20150831
  Receipt Date: 20170328
  Transmission Date: 20170428
  Serious: Yes (Hospitalization, Other)
  Sender: FDA-Public Use
  Company Number: US-ELI_LILLY_AND_COMPANY-US201103002742

PATIENT
  Age: 44 Year
  Sex: Female

DRUGS (5)
  1. AMITRIPTYLINE [Concomitant]
     Active Substance: AMITRIPTYLINE
  2. VOLTAREN [Concomitant]
     Active Substance: DICLOFENAC SODIUM
  3. CYMBALTA [Suspect]
     Active Substance: DULOXETINE HYDROCHLORIDE
     Dosage: UNK
  4. SYNTHROID [Concomitant]
     Active Substance: LEVOTHYROXINE SODIUM
  5. CYMBALTA [Suspect]
     Active Substance: DULOXETINE HYDROCHLORIDE
     Indication: NEURALGIA
     Dosage: 30 MG, BID
     Dates: start: 201012, end: 20110303

REACTIONS (33)
  - Hypomania [Unknown]
  - Tremor [Unknown]
  - Aphasia [Unknown]
  - Fatigue [Unknown]
  - Sensory disturbance [Unknown]
  - Headache [Unknown]
  - Pruritus [Unknown]
  - Drug hypersensitivity [Unknown]
  - Affect lability [Unknown]
  - Drug withdrawal syndrome [Unknown]
  - Dysphoria [Unknown]
  - Dystonia [Unknown]
  - Anxiety [Unknown]
  - Lethargy [Unknown]
  - Tremor [Unknown]
  - Fall [Unknown]
  - Wrong technique in product usage process [Unknown]
  - Libido decreased [Unknown]
  - Constipation [Unknown]
  - Depressed mood [Unknown]
  - Agitation [Unknown]
  - Seizure [Unknown]
  - Paraesthesia [Unknown]
  - Irritability [Unknown]
  - Insomnia [Unknown]
  - Dysarthria [Unknown]
  - Off label use [Recovered/Resolved]
  - Weight increased [Unknown]
  - Myoclonus [Unknown]
  - Vertigo [Unknown]
  - Dizziness [Unknown]
  - Tardive dyskinesia [Unknown]
  - Dry mouth [Unknown]

NARRATIVE: CASE EVENT DATE: 20110305
